FAERS Safety Report 10190867 (Version 1)
Quarter: 2014Q2

REPORT INFORMATION
  Report Type: Spontaneous
  Country: US (occurrence: None)
  Receive Date: 20140521
  Receipt Date: 20140521
  Transmission Date: 20141212
  Serious: Yes (Disabling)
  Sender: FDA-Public Use
  Company Number: None

PATIENT
  Age: 38 Year
  Sex: Female
  Weight: 63.5 kg

DRUGS (1)
  1. CYMBALTA [Suspect]
     Indication: BIPOLAR DISORDER
     Dosage: 2 PILLS INITIALLY; NOW 3, ONCE DAILY, TAKEN BY MOUTH
     Route: 048

REACTIONS (3)
  - Gingival pain [None]
  - Toothache [None]
  - Sensitivity of teeth [None]
